FAERS Safety Report 15003773 (Version 1)
Quarter: 2018Q2

REPORT INFORMATION
  Report Type: Spontaneous
  Country: DE (occurrence: DE)
  Receive Date: 20180613
  Receipt Date: 20180613
  Transmission Date: 20180711
  Serious: Yes (Hospitalization)
  Sender: FDA-Public Use
  Company Number: DE-TEVA-2018-DE-905119

PATIENT
  Age: 64 Year
  Sex: Male

DRUGS (5)
  1. METOPROLOL. [Suspect]
     Active Substance: METOPROLOL
     Dosage: 0-0-1-0
     Route: 065
  2. SIMVASTATIN. [Concomitant]
     Active Substance: SIMVASTATIN
     Dosage: 0-0-1-0
     Route: 065
  3. ACETYLSALICYLSAEURE [Concomitant]
     Active Substance: ASPIRIN
     Dosage: 1-0-0-0
     Route: 065
  4. EXFORGE HCT [Suspect]
     Active Substance: AMLODIPINE BESYLATE\HYDROCHLOROTHIAZIDE\VALSARTAN
     Dosage: 10|320|25 MG, 1-0-0-0
     Route: 065
  5. MOXONIDINE [Suspect]
     Active Substance: MOXONIDINE
     Dosage: 0-0-1-0
     Route: 065

REACTIONS (2)
  - Orthostatic intolerance [Unknown]
  - Dizziness [Unknown]
